FAERS Safety Report 10173531 (Version 1)
Quarter: 2014Q2

REPORT INFORMATION
  Report Type: Spontaneous
  Country: US (occurrence: US)
  Receive Date: 20140515
  Receipt Date: 20140515
  Transmission Date: 20141212
  Serious: No
  Sender: FDA-Public Use
  Company Number: US-PFIZER INC-2014132928

PATIENT
  Sex: Female

DRUGS (6)
  1. JUNIOR STRENGTH ADVIL [Suspect]
     Indication: RESPIRATORY TRACT CONGESTION
     Dosage: UNK
  2. JUNIOR STRENGTH ADVIL [Suspect]
     Indication: BACK PAIN
  3. JUNIOR STRENGTH ADVIL [Suspect]
     Indication: ARTHRALGIA
  4. ADVIL [Suspect]
     Indication: RESPIRATORY TRACT CONGESTION
     Dosage: UNK
  5. ADVIL [Suspect]
     Indication: BACK PAIN
  6. ADVIL [Suspect]
     Indication: ARTHRALGIA

REACTIONS (2)
  - Drug ineffective [Unknown]
  - Chest pain [Recovered/Resolved]
